FAERS Safety Report 5504719-0 (Version None)
Quarter: 2007Q4

REPORT INFORMATION
  Report Type: 
  Country: None (occurrence: None)
  Receive Date: 20071031
  Receipt Date: 20071019
  Transmission Date: 20080405
  Serious: Yes (Hospitalization)
  Sender: FDA-Public Use
  Company Number: A-JP2007-14378

PATIENT
  Age: 57 Year
  Sex: Female
  Weight: 41 kg

DRUGS (8)
  1. TRACLEER [Suspect]
     Indication: PULMONARY HYPERTENSION
     Dosage: 31.25 MG, QD, ORAL, 31.25 MG, BID, ORAL, 46.875 MG, BID, ORAL, 62.5 MG, BID, ORAL
     Route: 048
     Dates: start: 20060419, end: 20060421
  2. TRACLEER [Suspect]
     Indication: PULMONARY HYPERTENSION
     Dosage: 31.25 MG, QD, ORAL, 31.25 MG, BID, ORAL, 46.875 MG, BID, ORAL, 62.5 MG, BID, ORAL
     Route: 048
     Dates: start: 20060422, end: 20060425
  3. TRACLEER [Suspect]
     Indication: PULMONARY HYPERTENSION
     Dosage: 31.25 MG, QD, ORAL, 31.25 MG, BID, ORAL, 46.875 MG, BID, ORAL, 62.5 MG, BID, ORAL
     Route: 048
     Dates: start: 20060426, end: 20060427
  4. TRACLEER [Suspect]
     Indication: PULMONARY HYPERTENSION
     Dosage: 31.25 MG, QD, ORAL, 31.25 MG, BID, ORAL, 46.875 MG, BID, ORAL, 62.5 MG, BID, ORAL
     Route: 048
     Dates: start: 20060428, end: 20070219
  5. TRACLEER [Suspect]
     Indication: PULMONARY HYPERTENSION
     Dosage: 31.25 MG, QD, ORAL, 31.25 MG, BID, ORAL, 46.875 MG, BID, ORAL, 62.5 MG, BID, ORAL
     Route: 048
     Dates: start: 20070220
  6. DOMPERIDONE (DOMPERIDONE) [Concomitant]
  7. TOCOPHERYL NICOTINATE (TOCOPHERYL NICONINATE) [Concomitant]
  8. FAMOTIDINE [Concomitant]

REACTIONS (1)
  - ANAEMIA [None]
